FAERS Safety Report 26068272 (Version 2)
Quarter: 2025Q4

REPORT INFORMATION
  Report Type: Report from Study
  Country: US (occurrence: US)
  Receive Date: 20251120
  Receipt Date: 20251208
  Transmission Date: 20260118
  Serious: Yes (Other)
  Sender: ACADIA PHARMACEUTICALS
  Company Number: US-ACADIA PHARMACEUTICALS INC.-ACA-2025-PIM-012323

PATIENT
  Sex: Female

DRUGS (18)
  1. NUPLAZID [Suspect]
     Active Substance: PIMAVANSERIN TARTRATE
     Indication: Parkinson^s disease psychosis
     Dosage: 34 MILLIGRAM, QD
     Route: 048
     Dates: start: 202409
  2. NUPLAZID [Suspect]
     Active Substance: PIMAVANSERIN TARTRATE
     Indication: Hallucinations, mixed
  3. ALENDRONATE [Concomitant]
     Active Substance: ALENDRONATE SODIUM
     Dosage: TAKE 1 TABLET 30 MINUTES BEFORE THE FIRST FOOD, BEVERAGE OR MEDICINE
     Dates: start: 20250819
  4. CALCIUM [Concomitant]
     Active Substance: CALCIUM
     Dosage: 1 TABLET BY MOUTH DAILY
     Route: 048
     Dates: start: 20240716
  5. CARBIDOPA LEVODOPA [Concomitant]
     Active Substance: CARBIDOPA\LEVODOPA
     Dosage: TAKE 3 TABLETS BY MOUTH 4 TIMES DAILY
     Route: 048
     Dates: start: 20251017
  6. CYANOCOBALAMIN [Concomitant]
     Active Substance: CYANOCOBALAMIN
     Dosage: 1,000 MCG/ML INJECTION SOLUTION
     Dates: start: 20250219
  7. ENTACAPONE [Concomitant]
     Active Substance: ENTACAPONE
     Indication: Parkinson^s disease
     Dosage: TAKE 1 TABLET BY MOUTH 4 TIMES DAILY
     Dates: start: 20251010
  8. ESCITALOPRAM [Concomitant]
     Active Substance: ESCITALOPRAM OXALATE
     Dosage: TAKE 1 TABLET BY MOUTH ONCE DAILY FOR 90 DAYS
     Dates: start: 20250827
  9. GABAPENTIN [Concomitant]
     Active Substance: GABAPENTIN
     Dosage: ONE CAPSULE AT NIGHT
  10. PANTOPRAZOLE [Concomitant]
     Active Substance: PANTOPRAZOLE
     Dosage: TAKE 1 TABLET BY MOUTH ONCE DAILY
     Route: 048
     Dates: start: 20250906
  11. PANTOPRAZOLE [Concomitant]
     Active Substance: PANTOPRAZOLE
  12. PRAVASTATIN [Concomitant]
     Active Substance: PRAVASTATIN
     Dosage: TAKE 1 TABLET BY MOUTH ONCE DAILY
     Dates: start: 20250828
  13. RISPERIDONE [Concomitant]
     Active Substance: RISPERIDONE
     Dosage: TAKE 1 TABLET BY MOUTH TWICE DAILY
     Dates: start: 20251104
  14. ZONISAMIDE [Concomitant]
     Active Substance: ZONISAMIDE
     Dosage: UNK, QD
     Dates: start: 20251111
  15. SINEMET [Concomitant]
     Active Substance: CARBIDOPA\LEVODOPA
     Indication: Tremor
  16. ENTACAPONE [Concomitant]
     Active Substance: ENTACAPONE
     Indication: Tremor
  17. RYTARY [Concomitant]
     Active Substance: CARBIDOPA\LEVODOPA
     Indication: Tremor
  18. MIRTAZAPINE [Concomitant]
     Active Substance: MIRTAZAPINE

REACTIONS (23)
  - Hallucination, visual [Unknown]
  - Hallucination [Not Recovered/Not Resolved]
  - Insomnia [Not Recovered/Not Resolved]
  - Diplopia [Unknown]
  - Arthralgia [Unknown]
  - Ligament sprain [Recovering/Resolving]
  - Anxiety [Unknown]
  - Increased appetite [Unknown]
  - Balance disorder [Unknown]
  - Panic reaction [Recovered/Resolved]
  - Tremor [Recovering/Resolving]
  - Dyskinesia [Recovered/Resolved]
  - Weight increased [Unknown]
  - Amnesia [Unknown]
  - General physical health deterioration [Unknown]
  - Abdominal pain [Unknown]
  - Dysphagia [Unknown]
  - Iron deficiency anaemia [Unknown]
  - Somnolence [Unknown]
  - Fall [Unknown]
  - Gait disturbance [Recovering/Resolving]
  - Nausea [Unknown]
  - Incorrect route of product administration [Recovered/Resolved]

NARRATIVE: CASE EVENT DATE: 20240101
